FAERS Safety Report 9821011 (Version 1)
Quarter: 2013Q4

REPORT INFORMATION
  Report Type: Spontaneous
  Country: US (occurrence: None)
  Receive Date: 20131028
  Receipt Date: 20131028
  Transmission Date: 20140711
  Serious: Yes (Other)
  Sender: FDA-Public Use
  Company Number: 2013US001673

PATIENT
  Sex: Male
  Weight: 54 kg

DRUGS (2)
  1. ICLUSIG (PONATINIB) TABLET, 45MG [Suspect]
     Indication: CHRONIC MYELOID LEUKAEMIA
     Route: 048
     Dates: start: 20130120, end: 20130520
  2. ACYCLOVIR (ACYCLOVIR) [Concomitant]

REACTIONS (1)
  - Drug ineffective [None]
